FAERS Safety Report 16766623 (Version 2)
Quarter: 2019Q4

REPORT INFORMATION
  Report Type: Spontaneous
  Country: RO (occurrence: RO)
  Receive Date: 20190903
  Receipt Date: 20191018
  Transmission Date: 20200122
  Serious: Yes (Hospitalization, Other)
  Sender: FDA-Public Use
  Company Number: RO-PFIZER INC-2019376750

PATIENT
  Sex: Male

DRUGS (1)
  1. SUTENT [Suspect]
     Active Substance: SUNITINIB MALATE
     Indication: METASTATIC RENAL CELL CARCINOMA
     Dosage: 50 MG, CYCLIC, (4/2 WEEK)

REACTIONS (4)
  - Syncope [Recovered/Resolved]
  - Yellow skin [Recovering/Resolving]
  - Epistaxis [Recovered/Resolved]
  - Coma [Recovered/Resolved]
